FAERS Safety Report 9789706 (Version 1)
Quarter: 2013Q4

REPORT INFORMATION
  Report Type: Spontaneous
  Country: GB (occurrence: None)
  Receive Date: 20131227
  Receipt Date: 20131227
  Transmission Date: 20140711
  Serious: Yes (Hospitalization)
  Sender: FDA-Public Use
  Company Number: GB2013K5348SPO

PATIENT
  Age: 79 Year
  Sex: Female

DRUGS (5)
  1. LANSOPRAZOLE [Suspect]
     Indication: PRODUCT USED FOR UNKNOWN INDICATION
     Route: 048
     Dates: start: 20061031, end: 201208
  2. OMEPRAZOLE [Suspect]
     Indication: PRODUCT USED FOR UNKNOWN INDICATION
     Route: 048
     Dates: start: 20060201, end: 20061030
  3. FOLIC ACID (FOLIC ACID) [Concomitant]
  4. MELOXICAM (MELOXICAM) [Concomitant]
  5. METHOTREXATE (METHOTREXATE) [Concomitant]

REACTIONS (43)
  - Gastritis [None]
  - Abnormal dreams [None]
  - Amnesia [None]
  - Decreased appetite [None]
  - Back pain [None]
  - Blood count abnormal [None]
  - Breast tenderness [None]
  - Cataract [None]
  - Constipation [None]
  - Diarrhoea [None]
  - Eye disorder [None]
  - Fatigue [None]
  - Dizziness [None]
  - Gingival disorder [None]
  - Hallucination [None]
  - Head titubation [None]
  - Heart rate increased [None]
  - Infection [None]
  - Muscle spasms [None]
  - Monoclonal gammopathy [None]
  - Myalgia [None]
  - Muscular weakness [None]
  - Nail disorder [None]
  - Nausea [None]
  - Nightmare [None]
  - Osteoporosis [None]
  - Pain [None]
  - Pelvic pain [None]
  - Postmenopausal haemorrhage [None]
  - Sneezing [None]
  - Oropharyngeal pain [None]
  - Parosmia [None]
  - Muscle strain [None]
  - Bursitis [None]
  - Malaise [None]
  - Vomiting [None]
  - Weight decreased [None]
  - Abdominal distension [None]
  - Abdominal pain [None]
  - Vitamin B12 deficiency [None]
  - Hepatic steatosis [None]
  - Pain in extremity [None]
  - Insomnia [None]
